FAERS Safety Report 9625601 (Version 2)
Quarter: 2013Q4

REPORT INFORMATION
  Report Type: Spontaneous
  Country: US (occurrence: US)
  Receive Date: 20131016
  Receipt Date: 20131031
  Transmission Date: 20140711
  Serious: Yes (Hospitalization)
  Sender: FDA-Public Use
  Company Number: US-BAYER-2013-124167

PATIENT
  Age: 44 Year
  Sex: Female
  Weight: 58.96 kg

DRUGS (19)
  1. YAZ [Suspect]
     Dosage: UNK
  2. YASMIN [Suspect]
     Dosage: UNK
  3. CIPROFLOXACIN [Concomitant]
     Indication: INFECTION
     Dosage: 500 MG, 2 TIMES A DAY UNTIL GONE
     Route: 048
  4. DIPHENOXYLATE/ATROPINE [ATROPINE SULFATE,DIPHENOXYLATE HYDROCHLORI [Concomitant]
     Indication: DIARRHOEA
     Dosage: 2.5 MG, 2 TABLET 4 TIMES A DAY IF NEED
  5. PHENERGAN [Concomitant]
     Dosage: 25 MG, UNK
     Route: 042
  6. TORADOL [Concomitant]
     Dosage: 30 MG, UNK
     Route: 042
  7. DEMEROL [Concomitant]
     Dosage: 12.5 MG, UNK
     Route: 042
  8. ENTOCORT [Concomitant]
     Indication: COLITIS
     Dosage: 3 MG,CAPSULES TAKE 3 TABLET ONCE DAILY FOR 3 WEEKS 2 TABLETS EVERY MORNING FOR 3
  9. HYDROCODONE/ACETAMINOPHEN [Concomitant]
     Indication: PAIN
     Dosage: 5/325 MG TAKE 1 OR 2 TABLET EVERY 4 TO 6HOURS IF NEEDED
  10. AMBIEN CR [Concomitant]
     Dosage: 6.25 AT BEDTIME PRN
     Route: 048
  11. IMITREX [Concomitant]
     Indication: MIGRAINE
     Dosage: 20 MG, PRN
     Route: 045
  12. EXCEDRIN MIGRAINE [Concomitant]
     Dosage: 2
  13. PROMETHAZINE [Concomitant]
     Indication: NAUSEA
     Dosage: 25 MG, PRN
     Route: 048
  14. PROMETHAZINE [Concomitant]
     Indication: VOMITING
  15. ANEXSIA [Concomitant]
  16. ZOLPIDEM [Concomitant]
  17. TYLENOL [PARACETAMOL] [Concomitant]
  18. ZOFRAN [Concomitant]
     Indication: NAUSEA
  19. ZOFRAN [Concomitant]
     Indication: VOMITING

REACTIONS (2)
  - Transverse sinus thrombosis [Recovering/Resolving]
  - Jugular vein thrombosis [Recovering/Resolving]
